FAERS Safety Report 4413603-5 (Version None)
Quarter: 2004Q3

REPORT INFORMATION
  Report Type: 
  Country: None (occurrence: None)
  Receive Date: 20040802
  Receipt Date: 20030929
  Transmission Date: 20050211
  Serious: Yes (Disabling)
  Sender: FDA-Public Use
  Company Number: US-MERCK-0310USA00143

PATIENT
  Age: 51 Year
  Sex: Female
  Weight: 77 kg

DRUGS (1)
  1. VIOXX [Suspect]
     Indication: RHEUMATOID ARTHRITIS
     Route: 048
     Dates: start: 20000101, end: 20020101

REACTIONS (10)
  - ARTHRITIS [None]
  - CARDIAC DISORDER [None]
  - CHEST PAIN [None]
  - CYST [None]
  - DYSPEPSIA [None]
  - EMOTIONAL DISTRESS [None]
  - HEART RATE IRREGULAR [None]
  - HYPERTENSION [None]
  - INTRASPINAL ABSCESS [None]
  - PALPITATIONS [None]
